FAERS Safety Report 7643026-7 (Version None)
Quarter: 2011Q3

REPORT INFORMATION
  Report Type: 
  Country: None (occurrence: None)
  Receive Date: 20110728
  Receipt Date: 20110719
  Transmission Date: 20111222
  Serious: Yes (Hospitalization, Other)
  Sender: FDA-Public Use
  Company Number: CN-ASTRAZENECA-2011SE43041

PATIENT
  Age: 25 Year
  Sex: Male

DRUGS (1)
  1. LIDOCAINE [Suspect]
     Route: 053

REACTIONS (12)
  - CHOKING SENSATION [None]
  - HEART RATE INCREASED [None]
  - FATIGUE [None]
  - ANGINA PECTORIS [None]
  - DRUG HYPERSENSITIVITY [None]
  - PRURITUS [None]
  - CHEST PAIN [None]
  - DECUBITUS ULCER [None]
  - PALPITATIONS [None]
  - PAPULE [None]
  - HEART SOUNDS ABNORMAL [None]
  - ELECTROCARDIOGRAM ST-T CHANGE [None]
